FAERS Safety Report 9694868 (Version 2)
Quarter: 2013Q4

REPORT INFORMATION
  Report Type: Report from Study
  Country: EC (occurrence: EC)
  Receive Date: 20131119
  Receipt Date: 20131125
  Transmission Date: 20140711
  Serious: Yes (Life-Threatening)
  Sender: FDA-Public Use
  Company Number: EC-ROCHE-1304492

PATIENT
  Sex: Female

DRUGS (1)
  1. BONVIVA [Suspect]
     Indication: OSTEOPOROSIS
     Dosage: EVERY 20TH OF THE MONTH
     Route: 048
     Dates: start: 20120425

REACTIONS (1)
  - Cardiac disorder [Recovered/Resolved]
